FAERS Safety Report 14345696 (Version 1)
Quarter: 2018Q1

REPORT INFORMATION
  Report Type: Spontaneous
  Country: US (occurrence: US)
  Receive Date: 20180103
  Receipt Date: 20180103
  Transmission Date: 20180509
  Serious: No
  Sender: FDA-Public Use
  Company Number: US-TARO-2017TAR00929

PATIENT
  Sex: Female

DRUGS (2)
  1. HYDROCORTISONE CREAM [Suspect]
     Active Substance: HYDROCORTISONE
     Indication: RASH PRURITIC
     Dosage: UNK
     Route: 061
     Dates: start: 2017, end: 2017
  2. HYDROCODONE [Concomitant]
     Active Substance: HYDROCODONE
     Dosage: UNK, 2X/DAY

REACTIONS (1)
  - Drug ineffective [Recovered/Resolved]

NARRATIVE: CASE EVENT DATE: 2017
